FAERS Safety Report 18285695 (Version 2)
Quarter: 2020Q3

REPORT INFORMATION
  Report Type: Report from Study
  Country: US (occurrence: US)
  Receive Date: 20200918
  Receipt Date: 20200924
  Transmission Date: 20201103
  Serious: No
  Sender: FDA-Public Use
  Company Number: NVSC2020US255531

PATIENT
  Sex: Female

DRUGS (2)
  1. PIQRAY [Suspect]
     Active Substance: ALPELISIB
     Dosage: 300 MG, QD(STARTING AT 50MG DAILY, INCREASING UPTO REACHING 250 MG)
     Route: 048
     Dates: start: 20200801
  2. PIQRAY [Suspect]
     Active Substance: ALPELISIB
     Indication: BREAST CANCER FEMALE
     Dosage: UNKNOWN
     Route: 065

REACTIONS (1)
  - Rash [Recovering/Resolving]
